FAERS Safety Report 8888491 (Version 1)
Quarter: 2012Q4

REPORT INFORMATION
  Report Type: Report from Study
  Country: DE (occurrence: DE)
  Receive Date: 20121106
  Receipt Date: 20121106
  Transmission Date: 20130627
  Serious: Yes (Death, Other)
  Sender: FDA-Public Use
  Company Number: DE-ROCHE-1152584

PATIENT
  Sex: Female
  Weight: 55 kg

DRUGS (1)
  1. TRASTUZUMAB [Suspect]
     Indication: GASTRIC CANCER
     Route: 065

REACTIONS (2)
  - Neoplasm malignant [Fatal]
  - Abdominal pain [Unknown]
